FAERS Safety Report 7988949-4 (Version None)
Quarter: 2011Q4

REPORT INFORMATION
  Report Type: 
  Country: None (occurrence: None)
  Receive Date: 20111219
  Receipt Date: 20111207
  Transmission Date: 20120403
  Serious: Yes (Other)
  Sender: FDA-Public Use
  Company Number: US-BAYER-2011-117949

PATIENT
  Age: 20 Year
  Sex: Female

DRUGS (1)
  1. YASMIN [Suspect]
     Dosage: UNK
     Route: 048
     Dates: start: 20051101, end: 20060901

REACTIONS (5)
  - GALLBLADDER DISORDER [None]
  - INJURY [None]
  - ANXIETY [None]
  - POST CHOLECYSTECTOMY SYNDROME [None]
  - GALLBLADDER PAIN [None]
